FAERS Safety Report 20937440 (Version 1)
Quarter: 2022Q2

REPORT INFORMATION
  Report Type: Spontaneous
  Country: US (occurrence: None)
  Receive Date: 20220608
  Receipt Date: 20220608
  Transmission Date: 20220721
  Serious: No
  Sender: FDA-Public Use
  Company Number: None

PATIENT
  Age: 56 Year
  Sex: Female
  Weight: 62.14 kg

DRUGS (14)
  1. MESNEX [Suspect]
     Active Substance: MESNA
     Dosage: OTHER FREQUENCY : Q21DAYS;?
     Route: 048
     Dates: start: 20220415, end: 202205
  2. ATORVASTATIN [Concomitant]
     Active Substance: ATORVASTATIN
  3. CALCIUM [Concomitant]
     Active Substance: CALCIUM
  4. GABAPENTIN [Concomitant]
     Active Substance: GABAPENTIN
  5. LEXAPRO [Concomitant]
     Active Substance: ESCITALOPRAM OXALATE
  6. MAGNESIUM [Concomitant]
     Active Substance: MAGNESIUM
  7. METHADONE [Concomitant]
     Active Substance: METHADONE HYDROCHLORIDE
  8. MOTRIN [Concomitant]
     Active Substance: IBUPROFEN
  9. VITAMINS [Concomitant]
     Active Substance: VITAMINS
  10. OXYCODONE [Concomitant]
     Active Substance: OXYCODONE
  11. PEPCID [Concomitant]
     Active Substance: FAMOTIDINE
  12. PERCOCET [Concomitant]
     Active Substance: ACETAMINOPHEN\OXYCODONE HYDROCHLORIDE
  13. VITAMIN B COMPLEX [Concomitant]
     Active Substance: CYANOCOBALAMIN\DEXPANTHENOL\NIACINAMIDE\PYRIDOXINE HYDROCHLORIDE\RIBOFLAVIN 5^-PHOSPHATE SODIUM\THIA
  14. VITAMIN D [Concomitant]
     Active Substance: VITAMIN D NOS

REACTIONS (1)
  - Disease progression [None]
